FAERS Safety Report 8874481 (Version 1)
Quarter: 2012Q4

REPORT INFORMATION
  Report Type: 
  Country: US (occurrence: US)
  Receive Date: 20121030
  Receipt Date: 20121030
  Transmission Date: 20130627
  Serious: No
  Sender: FDA-Public Use
  Company Number: US-009507513-1210USA009702

PATIENT
  Age: 55 Year
  Sex: Female

DRUGS (2)
  1. JANUVIA [Suspect]
     Indication: TYPE 2 DIABETES MELLITUS
     Dosage: 100 mg, qd
     Route: 048
  2. JANUVIA [Suspect]
     Dosage: 100 mg, qd

REACTIONS (2)
  - Oedema peripheral [Not Recovered/Not Resolved]
  - Blood glucose abnormal [Unknown]
